FAERS Safety Report 8484695-1 (Version None)
Quarter: 2012Q3

REPORT INFORMATION
  Report Type: 
  Country: None (occurrence: None)
  Receive Date: 20120703
  Receipt Date: 20120504
  Transmission Date: 20120928
  Serious: No
  Sender: FDA-Public Use
  Company Number: US-TEVA-336723USA

PATIENT
  Sex: Female
  Weight: 70.37 kg

DRUGS (8)
  1. ESCITALOPRAM OXALATE [Concomitant]
     Route: 048
  2. LORATADINE [Concomitant]
     Route: 048
  3. MONTELUKAST [Concomitant]
  4. ALPRAZOLAM [Concomitant]
     Route: 048
  5. AZELASTINE HYDROCHLORIDE [Interacting]
  6. NUVIGIL [Suspect]
     Indication: SLEEP APNOEA SYNDROME
     Route: 048
     Dates: start: 20120427
  7. MELOXICAM [Concomitant]
     Route: 048
  8. MULTI-VITAMIN [Concomitant]
     Route: 048

REACTIONS (2)
  - INSOMNIA [None]
  - DRUG INEFFECTIVE [None]
